FAERS Safety Report 18767735 (Version 2)
Quarter: 2021Q1

REPORT INFORMATION
  Report Type: Spontaneous
  Country: GR (occurrence: GR)
  Receive Date: 20210121
  Receipt Date: 20210209
  Transmission Date: 20210419
  Serious: Yes (Other)
  Sender: FDA-Public Use
  Company Number: GR-GLAXOSMITHKLINE-GR2021009677

PATIENT
  Age: 45 Year
  Sex: Female

DRUGS (1)
  1. EXCEDRIN MIGRAINE [Suspect]
     Active Substance: ACETAMINOPHEN\ASPIRIN\CAFFEINE
     Indication: HEADACHE
     Dosage: UNK 250/250/65 MG

REACTIONS (6)
  - Pharyngeal haemorrhage [Unknown]
  - Anaphylactic shock [Unknown]
  - Drug ineffective [Unknown]
  - Haemoptysis [Unknown]
  - Hypersensitivity [Unknown]
  - Hypoaesthesia [Unknown]
